FAERS Safety Report 5810530-3 (Version None)
Quarter: 2008Q3

REPORT INFORMATION
  Report Type: 
  Country: None (occurrence: None)
  Receive Date: 20080715
  Receipt Date: 20080703
  Transmission Date: 20090109
  Serious: Yes (Hospitalization)
  Sender: FDA-Public Use
  Company Number: US-ELI_LILLY_AND_COMPANY-US200806001859

PATIENT
  Sex: Female
  Weight: 81.179 kg

DRUGS (11)
  1. BYETTA [Suspect]
     Dosage: 5 UG, 2/D
     Route: 065
     Dates: start: 20071205, end: 20071231
  2. GLIPIZIDE [Concomitant]
     Dosage: UNK, UNKNOWN
     Route: 065
  3. LYRICA [Concomitant]
     Dosage: UNK, UNKNOWN
     Route: 065
  4. CYMBALTA [Concomitant]
     Dosage: UNK, UNKNOWN
     Route: 065
  5. REGLAN [Concomitant]
     Dosage: UNK, UNKNOWN
     Route: 065
  6. NEXIUM [Concomitant]
     Dosage: UNK, UNKNOWN
     Route: 065
  7. ZETIA [Concomitant]
     Dosage: UNK, UNKNOWN
     Route: 065
  8. ZOCOR [Concomitant]
     Dosage: UNK, UNKNOWN
     Route: 065
  9. LASIX [Concomitant]
     Dosage: UNK, UNKNOWN
     Route: 065
  10. HYDROCHLOROTHIAZIDE [Concomitant]
     Dosage: UNK, UNKNOWN
     Route: 065
  11. UNIVASC [Concomitant]
     Dosage: UNK, UNKNOWN
     Route: 065

REACTIONS (1)
  - PANCREATITIS [None]
